FAERS Safety Report 18482905 (Version 1)
Quarter: 2020Q4

REPORT INFORMATION
  Report Type: Other
  Country: OM (occurrence: OM)
  Receive Date: 20201110
  Receipt Date: 20201110
  Transmission Date: 20210114
  Serious: Yes (Other)
  Sender: FDA-Public Use
  Company Number: OM-AJANTA PHARMA USA INC.-2093742

PATIENT
  Age: 3 Year
  Sex: Female

DRUGS (1)
  1. METFORMIN (ANDA 213651) [Suspect]
     Active Substance: METFORMIN HYDROCHLORIDE
     Indication: STEM CELL THERAPY

REACTIONS (4)
  - Hyperkalaemia [Recovered/Resolved]
  - Bradycardia [Recovered/Resolved]
  - Lactic acidosis [Recovered/Resolved]
  - Electrocardiogram T wave peaked [Recovered/Resolved]
